FAERS Safety Report 8162431-6 (Version None)
Quarter: 2012Q1

REPORT INFORMATION
  Report Type: 
  Country: None (occurrence: None)
  Receive Date: 20120221
  Receipt Date: 20120207
  Transmission Date: 20120608
  Serious: Yes (Disabling, Other)
  Sender: FDA-Public Use
  Company Number: 2011MA002897

PATIENT
  Sex: Female

DRUGS (3)
  1. PROMETHAZINE [Concomitant]
  2. METOCLOPRAMIDE [Suspect]
     Indication: GASTROINTESTINAL DISORDER
     Dosage: 10 MG
  3. NOVOLOG [Concomitant]

REACTIONS (12)
  - EXTRAPYRAMIDAL DISORDER [None]
  - TARDIVE DYSKINESIA [None]
  - ECONOMIC PROBLEM [None]
  - ANXIETY [None]
  - PROTRUSION TONGUE [None]
  - MOVEMENT DISORDER [None]
  - UNEVALUABLE EVENT [None]
  - INCORRECT DRUG ADMINISTRATION DURATION [None]
  - PAIN [None]
  - EXCESSIVE EYE BLINKING [None]
  - FAMILY STRESS [None]
  - LIP DISORDER [None]
